FAERS Safety Report 22217521 (Version 2)
Quarter: 2023Q2

REPORT INFORMATION
  Report Type: Spontaneous
  Country: PL (occurrence: PL)
  Receive Date: 20230417
  Receipt Date: 20230514
  Transmission Date: 20230721
  Serious: Yes (Other)
  Sender: FDA-Public Use
  Company Number: PL-AUROBINDO-AUR-APL-2023-015295

PATIENT
  Age: 32 Year
  Sex: Male

DRUGS (2)
  1. PAROXETINE [Suspect]
     Active Substance: PAROXETINE
     Indication: Depression
     Dosage: 40 MILLIGRAM, ONCE A DAY
     Route: 065
  2. PAROXETINE [Suspect]
     Active Substance: PAROXETINE
     Dosage: 20 MILLIGRAM, ONCE A DAY
     Route: 065

REACTIONS (7)
  - Mental impairment [Recovering/Resolving]
  - Sexual dysfunction [Recovering/Resolving]
  - Ejaculation delayed [Recovering/Resolving]
  - Libido decreased [Recovering/Resolving]
  - Quality of life decreased [Recovering/Resolving]
  - Hyperhidrosis [Recovering/Resolving]
  - Depression [Recovering/Resolving]
